FAERS Safety Report 5852861-7 (Version None)
Quarter: 2008Q3

REPORT INFORMATION
  Report Type: 
  Country: None (occurrence: None)
  Receive Date: 20080821
  Receipt Date: 20080820
  Transmission Date: 20090109
  Serious: Yes (Death)
  Sender: FDA-Public Use
  Company Number: NZ-ASTRAZENECA-2008AP03327

PATIENT
  Age: 31357 Day
  Sex: Male
  Weight: 62 kg

DRUGS (7)
  1. NAROPIN [Suspect]
     Indication: ABDOMINAL OPERATION
     Dosage: 750MG BOLUS DOSES OF 20ML OVER 24 HOURS
     Dates: start: 20080218, end: 20080221
  2. NAROPIN [Suspect]
     Indication: WOUND DRAINAGE
     Dosage: 750MG BOLUS DOSES OF 20ML OVER 24 HOURS
     Dates: start: 20080218, end: 20080221
  3. WARFARIN SODIUM [Concomitant]
  4. METOPROLOL TARTRATE [Concomitant]
  5. SIMVASTATIN [Concomitant]
  6. CANDESARTAN [Concomitant]
  7. FERROGRADUMENT [Concomitant]

REACTIONS (1)
  - GRAND MAL CONVULSION [None]
